FAERS Safety Report 5519353-6 (Version None)
Quarter: 2007Q4

REPORT INFORMATION
  Report Type: 
  Country: None (occurrence: None)
  Receive Date: 20071114
  Receipt Date: 20071102
  Transmission Date: 20080405
  Serious: Yes (Hospitalization)
  Sender: FDA-Public Use
  Company Number: DSJ-2007-08946

PATIENT
  Age: 88 Year
  Sex: Female

DRUGS (4)
  1. OLMESARTAN MEDOXOMIL [Suspect]
     Dosage: 20 MG, PER ORAL
     Route: 048
     Dates: start: 20070531
  2. THYRADIN S (LEVOTHYROXINE SODIUM)(LEVOTHYROXINE SODIUM) [Concomitant]
  3. ATELEC (CILNIDIPINE) (CILNIDIPINE) [Concomitant]
  4. ALFAROL (ALFACALCIDOL) (ALFACALCIDOL) [Concomitant]

REACTIONS (1)
  - SHOCK [None]
